FAERS Safety Report 6838927-3 (Version None)
Quarter: 2010Q3

REPORT INFORMATION
  Report Type: 
  Country: None (occurrence: None)
  Receive Date: 20100713
  Receipt Date: 20070907
  Transmission Date: 20110219
  Serious: No
  Sender: FDA-Public Use
  Company Number: US-PFIZER INC-2007046993

PATIENT
  Sex: Male
  Weight: 65 kg

DRUGS (6)
  1. CHANTIX [Suspect]
     Indication: SMOKING CESSATION THERAPY
     Route: 048
     Dates: start: 20070602
  2. COMBIVENT [Concomitant]
     Route: 055
  3. ALBUTEROL [Concomitant]
     Route: 055
  4. FORADIL [Concomitant]
     Route: 055
  5. MOMETASONE FUROATE [Concomitant]
     Route: 055
  6. CELEXA [Concomitant]
     Indication: DEPRESSION

REACTIONS (2)
  - NAUSEA [None]
  - VOMITING [None]
